FAERS Safety Report 9765217 (Version 1)
Quarter: 2013Q4

REPORT INFORMATION
  Report Type: Spontaneous
  Country: US (occurrence: US)
  Receive Date: 20131217
  Receipt Date: 20131217
  Transmission Date: 20140711
  Serious: No
  Sender: FDA-Public Use
  Company Number: US-GLAXOSMITHKLINE-A1037002A

PATIENT
  Age: 32 Year
  Sex: Male

DRUGS (2)
  1. SORIATANE [Suspect]
     Indication: PSORIASIS
     Dosage: 1TAB PER DAY
     Route: 048
     Dates: start: 201307, end: 20130807
  2. NO CONCURRENT MEDICATION [Concomitant]

REACTIONS (3)
  - Mood swings [Unknown]
  - Dry skin [Unknown]
  - Drug ineffective [Unknown]
